FAERS Safety Report 17896457 (Version 1)
Quarter: 2020Q2

REPORT INFORMATION
  Report Type: Spontaneous
  Country: DE (occurrence: DE)
  Receive Date: 20200615
  Receipt Date: 20200615
  Transmission Date: 20200714
  Serious: Yes (Hospitalization, Other)
  Sender: FDA-Public Use
  Company Number: NVSC2020DE164256

PATIENT
  Sex: Male
  Weight: 97 kg

DRUGS (4)
  1. ACETYLSALICYLIC ACID [Suspect]
     Active Substance: ASPIRIN
     Indication: PRODUCT USED FOR UNKNOWN INDICATION
     Dosage: 100 MG, QD
     Route: 065
  2. HYDROXYUREA. [Suspect]
     Active Substance: HYDROXYUREA
     Indication: PRODUCT USED FOR UNKNOWN INDICATION
     Dosage: 500 MG, QD
     Route: 065
  3. APIXABAN [Suspect]
     Active Substance: APIXABAN
     Indication: CEREBROVASCULAR ACCIDENT PROPHYLAXIS
     Dosage: 5 MG, QD (2.5 MILLIGRAM, BID)
     Route: 048
  4. HYDROXYUREA. [Suspect]
     Active Substance: HYDROXYUREA
     Dosage: 1000 MG, QD (500 MILLIGRAM, BID)
     Route: 065

REACTIONS (5)
  - Intentional product use issue [Unknown]
  - Anaemia macrocytic [Unknown]
  - Cerebral haemorrhage [Not Recovered/Not Resolved]
  - Subdural haematoma [Not Recovered/Not Resolved]
  - Cerebral thrombosis [Unknown]

NARRATIVE: CASE EVENT DATE: 20200311
